FAERS Safety Report 5968918-6 (Version None)
Quarter: 2008Q4

REPORT INFORMATION
  Report Type: 
  Country: None (occurrence: None)
  Receive Date: 20081126
  Receipt Date: 20081118
  Transmission Date: 20090506
  Serious: Yes (Hospitalization)
  Sender: FDA-Public Use
  Company Number: US-JNJFOC-20081104704

PATIENT
  Sex: Male
  Weight: 45.8 kg

DRUGS (5)
  1. INFLIXIMAB [Suspect]
     Route: 042
  2. INFLIXIMAB [Suspect]
     Indication: INFLAMMATORY BOWEL DISEASE
     Route: 042
  3. 5-ASA [Concomitant]
     Indication: INFLAMMATORY BOWEL DISEASE
  4. MERCAPTOPURINE [Concomitant]
     Indication: INFLAMMATORY BOWEL DISEASE
  5. METRONIDAZOLE [Concomitant]
     Indication: INFLAMMATORY BOWEL DISEASE

REACTIONS (1)
  - COLITIS [None]
